FAERS Safety Report 6433948-7 (Version None)
Quarter: 2009Q4

REPORT INFORMATION
  Report Type: 
  Country: None (occurrence: None)
  Receive Date: 20091110
  Receipt Date: 20091030
  Transmission Date: 20100525
  Serious: Yes (Hospitalization)
  Sender: FDA-Public Use
  Company Number: SE-AMGEN-US373366

PATIENT
  Sex: Female

DRUGS (2)
  1. ENBREL [Suspect]
     Indication: RHEUMATOID ARTHRITIS
     Dosage: DOSE 50 MG WEEKLY
     Route: 058
     Dates: start: 20090801
  2. PREDNISOLONE [Concomitant]
     Route: 065

REACTIONS (3)
  - CHOLECYSTECTOMY [None]
  - HYPONATRAEMIA [None]
  - NERVOUS SYSTEM DISORDER [None]
